FAERS Safety Report 15006693 (Version 2)
Quarter: 2018Q4

REPORT INFORMATION
  Report Type: Spontaneous
  Country: GB (occurrence: GB)
  Receive Date: 20180613
  Receipt Date: 20181026
  Transmission Date: 20190204
  Serious: Yes (Disabling, Other)
  Sender: FDA-Public Use
  Company Number: GB-TEVA-2018-GB-905199

PATIENT
  Age: 53 Year
  Sex: Female
  Weight: 60 kg

DRUGS (3)
  1. AMOXICILLIN. [Concomitant]
     Active Substance: AMOXICILLIN
     Route: 065
  2. CLARITHROMYCIN. [Concomitant]
     Active Substance: CLARITHROMYCIN
     Route: 065
  3. LEVOFLOXACIN. [Suspect]
     Active Substance: LEVOFLOXACIN
     Indication: LOWER RESPIRATORY TRACT INFECTION
     Dosage: 1000 MILLIGRAM DAILY;
     Route: 048
     Dates: start: 20180307, end: 20180310

REACTIONS (21)
  - Asthenia [Unknown]
  - Respiratory rate increased [Unknown]
  - Panic reaction [Unknown]
  - Myalgia [Recovering/Resolving]
  - Peripheral coldness [Unknown]
  - Balance disorder [Unknown]
  - Paraesthesia [Recovered/Resolved]
  - Tearfulness [Unknown]
  - Restlessness [Unknown]
  - Anxiety [Unknown]
  - Musculoskeletal stiffness [Unknown]
  - Tendon pain [Recovering/Resolving]
  - Muscle spasms [Recovered/Resolved]
  - Nausea [Recovered/Resolved]
  - Malaise [Unknown]
  - Dizziness [Unknown]
  - Pain in extremity [Recovering/Resolving]
  - Tendonitis [Recovering/Resolving]
  - Insomnia [Recovered/Resolved]
  - Agitation [Recovered/Resolved]
  - Cold sweat [Unknown]

NARRATIVE: CASE EVENT DATE: 20180307
